FAERS Safety Report 12573355 (Version 1)
Quarter: 2016Q3

REPORT INFORMATION
  Report Type: Spontaneous
  Country: US (occurrence: US)
  Receive Date: 20160720
  Receipt Date: 20160720
  Transmission Date: 20161109
  Serious: No
  Sender: FDA-Public Use
  Company Number: US-BAYER-2016-124927

PATIENT
  Sex: Female

DRUGS (2)
  1. BETASERON [Suspect]
     Active Substance: INTERFERON BETA-1B
     Indication: PRODUCT USED FOR UNKNOWN INDICATION
     Dosage: UNK
  2. BETACONNECT [Suspect]
     Active Substance: DEVICE
     Indication: DEVICE THERAPY
     Dosage: UNK

REACTIONS (2)
  - Device ineffective [Unknown]
  - Injection site pain [Unknown]
